FAERS Safety Report 14356656 (Version 3)
Quarter: 2024Q3

REPORT INFORMATION
  Report Type: Spontaneous
  Country: FR (occurrence: FR)
  Receive Date: 20180105
  Receipt Date: 20240715
  Transmission Date: 20241017
  Serious: Yes (Death, Other)
  Sender: LUNDBECK
  Company Number: None

PATIENT

DRUGS (13)
  1. CLOBAZAM [Suspect]
     Active Substance: CLOBAZAM
     Dosage: 20 003
     Route: 048
  2. CLOBAZAM [Suspect]
     Active Substance: CLOBAZAM
     Indication: Product used for unknown indication
  3. SECTRAL [Suspect]
     Active Substance: ACEBUTOLOL HYDROCHLORIDE
     Dosage: 300 003
     Route: 048
  4. SECTRAL [Suspect]
     Active Substance: ACEBUTOLOL HYDROCHLORIDE
     Indication: Cardiomyopathy
  5. ESOMEPRAZOLE MAGNESIUM [Suspect]
     Active Substance: ESOMEPRAZOLE MAGNESIUM
  6. ESOMEPRAZOLE MAGNESIUM [Suspect]
     Active Substance: ESOMEPRAZOLE MAGNESIUM
     Indication: Product used for unknown indication
  7. LOXAPINE [Suspect]
     Active Substance: LOXAPINE
     Dosage: 5 DF,QD
     Route: 048
     Dates: start: 20171031
  8. LOXAPINE [Suspect]
     Active Substance: LOXAPINE
     Dosage: 10 DF, QD
     Route: 048
     Dates: start: 20171031
  9. LOXAPINE [Suspect]
     Active Substance: LOXAPINE
     Indication: Agitation
  10. TRAMADOL HYDROCHLORIDE [Suspect]
     Active Substance: TRAMADOL HYDROCHLORIDE
     Dosage: UNK UNK,UNK
     Route: 048
  11. TRAMADOL HYDROCHLORIDE [Suspect]
     Active Substance: TRAMADOL HYDROCHLORIDE
     Indication: Product used for unknown indication
  12. RISPERDAL [Suspect]
     Active Substance: RISPERIDONE
     Dosage: 3.5 MG,QD (IN THREE DOSES)
     Route: 048
  13. RISPERDAL [Suspect]
     Active Substance: RISPERIDONE
     Indication: Product used for unknown indication

REACTIONS (1)
  - Death [Fatal]

NARRATIVE: CASE EVENT DATE: 20171121
